FAERS Safety Report 13294795 (Version 3)
Quarter: 2018Q2

REPORT INFORMATION
  Report Type: Spontaneous
  Country: US (occurrence: US)
  Receive Date: 20170303
  Receipt Date: 20180531
  Transmission Date: 20180711
  Serious: Yes (Hospitalization)
  Sender: FDA-Public Use
  Company Number: US-JNJFOC-20170210265

PATIENT
  Age: 77 Year
  Sex: Female

DRUGS (18)
  1. LASIX [Concomitant]
     Active Substance: FUROSEMIDE
     Route: 065
  2. FUROSEMIDE. [Concomitant]
     Active Substance: FUROSEMIDE
     Route: 065
  3. CLARITIN [Concomitant]
     Active Substance: LORATADINE
     Route: 065
  4. LIPITOR [Concomitant]
     Active Substance: ATORVASTATIN CALCIUM
     Route: 065
  5. FLUTICASONE PROPIONATE. [Concomitant]
     Active Substance: FLUTICASONE PROPIONATE
     Route: 065
  6. METFORMIN [Concomitant]
     Active Substance: METFORMIN HYDROCHLORIDE
     Route: 065
  7. RANEXA [Concomitant]
     Active Substance: RANOLAZINE
     Route: 065
  8. ASPIRIN. [Suspect]
     Active Substance: ASPIRIN
     Indication: PULMONARY EMBOLISM
     Dates: end: 201309
  9. CARVEDILOL. [Concomitant]
     Active Substance: CARVEDILOL
     Route: 065
  10. OMEPRAZOLE. [Concomitant]
     Active Substance: OMEPRAZOLE
     Route: 065
  11. LIVALO [Concomitant]
     Active Substance: PITAVASTATIN CALCIUM
     Route: 065
  12. CIPRO [Concomitant]
     Active Substance: CIPROFLOXACIN HYDROCHLORIDE
     Route: 065
  13. METRONIDAZOLE. [Concomitant]
     Active Substance: METRONIDAZOLE
     Route: 065
  14. COREG [Concomitant]
     Active Substance: CARVEDILOL
     Route: 065
  15. XARELTO [Suspect]
     Active Substance: RIVAROXABAN
     Indication: PULMONARY EMBOLISM
     Dosage: 15 MG AND 20 MG
     Route: 048
     Dates: start: 20130825, end: 20130914
  16. TRAMADOL. [Concomitant]
     Active Substance: TRAMADOL
     Route: 065
  17. LOSARTAN. [Concomitant]
     Active Substance: LOSARTAN
     Route: 065
  18. DIAZEPAM. [Concomitant]
     Active Substance: DIAZEPAM
     Route: 065

REACTIONS (1)
  - Duodenal ulcer haemorrhage [Recovered/Resolved]

NARRATIVE: CASE EVENT DATE: 201309
